FAERS Safety Report 6842449-3 (Version None)
Quarter: 2010Q3

REPORT INFORMATION
  Report Type: 
  Country: None (occurrence: None)
  Receive Date: 20100714
  Receipt Date: 20070730
  Transmission Date: 20110219
  Serious: No
  Sender: FDA-Public Use
  Company Number: US-PFIZER INC-2007063192

PATIENT
  Sex: Female
  Weight: 52 kg

DRUGS (7)
  1. CHANTIX [Suspect]
     Indication: SMOKING CESSATION THERAPY
     Dates: start: 20070723, end: 20070728
  2. LEVAQUIN [Concomitant]
  3. FEXOFENADINE [Concomitant]
  4. MONTELUKAST SODIUM [Concomitant]
  5. COMBIVENT [Concomitant]
  6. ANTIBIOTICS [Concomitant]
  7. DRUG, UNSPECIFIED [Concomitant]

REACTIONS (7)
  - ABNORMAL DREAMS [None]
  - DRUG INTERACTION [None]
  - INFLUENZA LIKE ILLNESS [None]
  - MALAISE [None]
  - NAUSEA [None]
  - PAIN [None]
  - VOMITING [None]
